FAERS Safety Report 5317139-9 (Version None)
Quarter: 2007Q2

REPORT INFORMATION
  Report Type: 
  Country: None (occurrence: None)
  Receive Date: 20070504
  Receipt Date: 20070424
  Transmission Date: 20071010
  Serious: Yes (Other)
  Sender: FDA-Public Use
  Company Number: CA-PFIZER INC-2007031080

PATIENT
  Age: 53 Year
  Sex: Female

DRUGS (10)
  1. LYRICA [Suspect]
     Indication: PAIN
     Route: 048
     Dates: start: 20061101
  2. ADALAT [Concomitant]
  3. DEMEROL [Concomitant]
  4. VALSARTAN [Concomitant]
  5. PREDNISONE TAB [Concomitant]
  6. METHOTREXATE [Concomitant]
  7. FOLIC ACID [Concomitant]
  8. PARIET [Concomitant]
  9. LASIX [Concomitant]
  10. GRAVOL TAB [Concomitant]

REACTIONS (4)
  - ASTHENIA [None]
  - CHEMOTHERAPY [None]
  - LOSS OF CONSCIOUSNESS [None]
  - TREMOR [None]
